FAERS Safety Report 4283325-2 (Version None)
Quarter: 2004Q1

REPORT INFORMATION
  Report Type: 
  Country: None (occurrence: None)
  Receive Date: 20040114
  Receipt Date: 20031014
  Transmission Date: 20041129
  Serious: Yes (Hospitalization)
  Sender: FDA-Public Use
  Company Number: BIVUS030095

PATIENT
  Age: 48 Year
  Sex: Female
  Weight: 71 kg

DRUGS (4)
  1. ANGIOMAX [Suspect]
     Indication: ANTICOAGULANT THERAPY
     Dosage: 10.5 ML, BOLUS, IV BOLUS
     Route: 040
     Dates: start: 20031003, end: 20031003
  2. ANGIOMAX [Suspect]
     Indication: STENT PLACEMENT
     Dosage: 10.5 ML, BOLUS, IV BOLUS
     Route: 040
     Dates: start: 20031003, end: 20031003
  3. CLOPIDOGREL BISULFATE [Concomitant]
  4. NITROGLYCERIN [Concomitant]

REACTIONS (1)
  - CORONARY ARTERY THROMBOSIS [None]
